FAERS Safety Report 13884046 (Version 2)
Quarter: 2017Q3

REPORT INFORMATION
  Report Type: Report from Study
  Country: None (occurrence: US)
  Receive Date: 20170820
  Receipt Date: 20170828
  Transmission Date: 20171127
  Serious: Yes (Hospitalization, Other)
  Sender: FDA-Public Use
  Company Number: US-ABBVIE-17K-163-2036674-00

PATIENT
  Age: 54 Year
  Sex: Female

DRUGS (1)
  1. HUMIRA [Suspect]
     Active Substance: ADALIMUMAB
     Indication: CROHN^S DISEASE
     Route: 058

REACTIONS (7)
  - Small intestinal perforation [Unknown]
  - Pain in extremity [Unknown]
  - Arthralgia [Unknown]
  - Sciatica [Not Recovered/Not Resolved]
  - Muscle spasms [Unknown]
  - Pain in extremity [Not Recovered/Not Resolved]
  - Diverticulum intestinal [Unknown]

NARRATIVE: CASE EVENT DATE: 201707
